FAERS Safety Report 13658934 (Version 1)
Quarter: 2017Q2

REPORT INFORMATION
  Report Type: Report from Study
  Country: HK (occurrence: HK)
  Receive Date: 20170616
  Receipt Date: 20170616
  Transmission Date: 20170830
  Serious: Yes (Other)
  Sender: FDA-Public Use
  Company Number: HK-SUN PHARMACEUTICAL INDUSTRIES LTD-2017R1-143087

PATIENT

DRUGS (1)
  1. DOXORUBICIN [Suspect]
     Active Substance: DOXORUBICIN
     Indication: HEPATOCELLULAR CARCINOMA
     Dosage: UNK
     Route: 065

REACTIONS (2)
  - Pancreatitis acute [Recovered/Resolved]
  - Pancreatitis necrotising [Recovered/Resolved]
